FAERS Safety Report 14091773 (Version 1)
Quarter: 2017Q4

REPORT INFORMATION
  Report Type: Spontaneous
  Country: US (occurrence: US)
  Receive Date: 20171013
  Receipt Date: 20171013
  Transmission Date: 20180321
  Serious: Yes (Hospitalization, Disabling, Other)
  Sender: FDA-Public Use
  Company Number: None

PATIENT
  Age: 74 Year
  Sex: Male
  Weight: 76.5 kg

DRUGS (7)
  1. VITAMIN D [Concomitant]
     Active Substance: CHOLECALCIFEROL
  2. LUPRON [Concomitant]
     Active Substance: LEUPROLIDE ACETATE
  3. CALCIUM CITRATE [Concomitant]
     Active Substance: CALCIUM CITRATE
  4. KEYTRUDA [Suspect]
     Active Substance: PEMBROLIZUMAB
     Indication: PROSTATE CANCER METASTATIC
     Dosage: IV 3 INFUSIONS 2 MO?
     Route: 042
     Dates: start: 20170607, end: 20170718
  5. PROLIA [Concomitant]
     Active Substance: DENOSUMAB
  6. XTANDI [Concomitant]
     Active Substance: ENZALUTAMIDE
  7. LOSARTAN. [Concomitant]
     Active Substance: LOSARTAN

REACTIONS (5)
  - Blood glucose increased [None]
  - Type 1 diabetes mellitus [None]
  - Fatigue [None]
  - Asthenia [None]
  - Weight decreased [None]

NARRATIVE: CASE EVENT DATE: 20171010
